FAERS Safety Report 8596228-X (Version None)
Quarter: 2012Q3

REPORT INFORMATION
  Report Type: 
  Country: None (occurrence: None)
  Receive Date: 20120815
  Receipt Date: 20120808
  Transmission Date: 20120928
  Serious: Yes (Hospitalization)
  Sender: FDA-Public Use
  Company Number: US-ASTRAZENECA-2010SE55369

PATIENT
  Age: 60 Year
  Sex: Male
  Weight: 95.3 kg

DRUGS (21)
  1. SEROQUEL XR [Suspect]
     Route: 048
     Dates: start: 20050101
  2. SEROQUEL XR [Suspect]
     Route: 048
     Dates: start: 20050101
  3. SEROQUEL XR [Suspect]
     Route: 048
     Dates: end: 20100101
  4. SEROQUEL XR [Suspect]
     Route: 048
     Dates: end: 20100101
  5. DEPAKOTE [Concomitant]
     Route: 048
  6. SEROQUEL XR [Suspect]
     Indication: ANXIETY
     Route: 048
  7. SEROQUEL XR [Suspect]
     Route: 048
  8. SEROQUEL XR [Suspect]
     Route: 048
     Dates: start: 20050101
  9. SEROQUEL XR [Suspect]
     Route: 048
     Dates: start: 20100101
  10. TRIPHEXIN [Concomitant]
     Indication: ADVERSE DRUG REACTION
     Route: 048
  11. SEROQUEL XR [Suspect]
     Indication: DEPRESSION
     Route: 048
  12. SEROQUEL XR [Suspect]
     Route: 048
     Dates: start: 20100101
  13. SEROQUEL XR [Suspect]
     Route: 048
  14. SEROQUEL XR [Suspect]
     Route: 048
  15. SEROQUEL XR [Suspect]
     Route: 048
     Dates: start: 20100101
  16. CLONAZEPAM [Concomitant]
     Indication: ANXIETY
     Route: 048
  17. DEPAKOTE [Concomitant]
     Indication: MOOD SWINGS
     Route: 048
  18. SEROQUEL XR [Suspect]
     Indication: SCHIZOPHRENIA, PARANOID TYPE
     Route: 048
  19. SEROQUEL XR [Suspect]
     Route: 048
     Dates: end: 20100101
  20. FLUPHENAZINE [Concomitant]
     Route: 048
  21. NAVANE [Concomitant]
     Indication: PROPHYLAXIS AGAINST ALCOHOLIC WITHDRAWAL SYNDROME

REACTIONS (11)
  - LIBIDO DECREASED [None]
  - PROSTATIC DISORDER [None]
  - DEPRESSION [None]
  - POLLAKIURIA [None]
  - DIARRHOEA [None]
  - ABDOMINAL PAIN UPPER [None]
  - COORDINATION ABNORMAL [None]
  - HYPERSOMNIA [None]
  - DIZZINESS [None]
  - DRUG INEFFECTIVE [None]
  - SCHIZOPHRENIA, PARANOID TYPE [None]
